FAERS Safety Report 10164320 (Version 1)
Quarter: 2014Q2

REPORT INFORMATION
  Report Type: Spontaneous
  Country: US (occurrence: US)
  Receive Date: 20140510
  Receipt Date: 20140510
  Transmission Date: 20141212
  Serious: No
  Sender: FDA-Public Use
  Company Number: US-BRISTOL-MYERS SQUIBB COMPANY-20045175

PATIENT
  Age: 64 Year
  Sex: Male
  Weight: 83.9 kg

DRUGS (7)
  1. BYDUREON [Suspect]
     Indication: TYPE 2 DIABETES MELLITUS
     Route: 058
  2. METFORMIN HCL [Suspect]
     Dosage: ( 1000MG IN THE MORNING  AND 1000MG AT NIGHT
  3. JANUVIA [Suspect]
  4. GLYBURIDE [Suspect]
     Dosage: 4 TABLETS A DAY - 2 ON THE MORNING AND 2 AT NIGHT
  5. GLUMETZA [Suspect]
  6. HCTZ [Concomitant]
  7. LISINOPRIL [Concomitant]

REACTIONS (4)
  - Blood glucose increased [Unknown]
  - Headache [Recovered/Resolved]
  - Decreased appetite [Unknown]
  - Expired product administered [Unknown]
